FAERS Safety Report 9069105 (Version 1)
Quarter: 2013Q1

REPORT INFORMATION
  Report Type: Spontaneous
  Country: US (occurrence: US)
  Receive Date: 20130215
  Receipt Date: 20130215
  Transmission Date: 20140127
  Serious: No
  Sender: FDA-Public Use
  Company Number: US-PFIZER INC-2013058584

PATIENT
  Age: 49 Year
  Sex: Female
  Weight: 72.6 kg

DRUGS (1)
  1. LEVOXYL [Suspect]
     Indication: HYPOTHYROIDISM
     Dosage: 175 UG, 1X/DAY
     Route: 048
     Dates: start: 1994, end: 201206

REACTIONS (6)
  - Anaemia [Unknown]
  - Depression [Unknown]
  - Mood swings [Unknown]
  - Constipation [Unknown]
  - Emotional disorder [Unknown]
  - Drug dose omission [Unknown]
